FAERS Safety Report 10233439 (Version 1)
Quarter: 2014Q2

REPORT INFORMATION
  Report Type: Spontaneous
  Country: US (occurrence: None)
  Receive Date: 20140506
  Receipt Date: 20140506
  Transmission Date: 20141212
  Serious: Yes (Hospitalization)
  Sender: FDA-Public Use
  Company Number: 1209535

PATIENT
  Sex: Female

DRUGS (16)
  1. AVASTIN (BEVACIZUMAB) (INFUSION, SOLUTION) [Suspect]
     Indication: OVARIAN CANCER STAGE IV
     Dates: end: 20110809
  2. GEMZAR (GEMCITABINE HYDROCHLORIDE) [Suspect]
     Indication: OVARIAN CANCER STAGE IV
     Dates: start: 20111011, end: 20111011
  3. DOXIL [Suspect]
     Indication: OVARIAN CANCER STAGE IV
     Dates: start: 20120925
  4. TOPOTECAN [Suspect]
     Indication: OVARIAN CANCER STAGE IV
     Dates: end: 20110809
  5. TAXOTERE (DOCETAXEL) [Concomitant]
  6. CARBOPLATIN (CARBOPLATIN) [Concomitant]
  7. ABRAXANE (PACLITAXEL ALBUMIN) [Concomitant]
  8. ALTRETAMINE (ALTRETAMINE) [Concomitant]
  9. CYCLOPHOSPHAMIDE (CYCLOPHOSPHAMIDE) [Concomitant]
  10. METHOTREXATE (METHOTREXATE) [Concomitant]
  11. FLUOROURACIL (FLUOROURACIL) [Concomitant]
  12. DEXTROSE 5% 0.9% (DEXTROSE, SODIUM CHLORIDE) [Concomitant]
  13. HEPARIN (HEPARIN SODIUM, HEPARIN) [Concomitant]
  14. SODIUM CHLORIDE 0.9% FLUSH (SODIUM CHLORIDE) [Concomitant]
  15. TAMOXIFEN (TAMOXIFEN CITRATE) [Concomitant]
  16. CISPLATIN (CISPLATIN) [Concomitant]

REACTIONS (8)
  - Diarrhoea [None]
  - Nausea [None]
  - Vomiting [None]
  - Abdominal distension [None]
  - Swelling [None]
  - Sensory disturbance [None]
  - Carbohydrate antigen 125 increased [None]
  - Disease progression [None]
